FAERS Safety Report 12661286 (Version 3)
Quarter: 2017Q1

REPORT INFORMATION
  Report Type: Spontaneous
  Country: US (occurrence: US)
  Receive Date: 20160817
  Receipt Date: 20170216
  Transmission Date: 20170428
  Serious: No
  Sender: FDA-Public Use
  Company Number: US-RELYPSA-RLY2016000856

PATIENT
  Age: 83 Year
  Sex: Female

DRUGS (22)
  1. ULORIC [Concomitant]
     Active Substance: FEBUXOSTAT
  2. PLAVIX [Concomitant]
     Active Substance: CLOPIDOGREL BISULFATE
  3. VITAMIN E                          /00110501/ [Concomitant]
     Active Substance: TOCOPHEROL
  4. AMLODIPINE BESYLATE. [Concomitant]
     Active Substance: AMLODIPINE BESYLATE
  5. AVAPRO [Concomitant]
     Active Substance: IRBESARTAN
  6. TRAMADOL HCL [Concomitant]
     Active Substance: TRAMADOL HYDROCHLORIDE
  7. LANOXIN [Concomitant]
     Active Substance: DIGOXIN
  8. VELTASSA [Suspect]
     Active Substance: PATIROMER
     Indication: HYPERKALAEMIA
     Dosage: 8.4 G, QD
     Route: 048
     Dates: start: 20160429
  9. XANAX [Concomitant]
     Active Substance: ALPRAZOLAM
  10. COREG [Concomitant]
     Active Substance: CARVEDILOL
  11. XALATAN [Concomitant]
     Active Substance: LATANOPROST
  12. VELTASSA [Suspect]
     Active Substance: PATIROMER
     Indication: CHRONIC KIDNEY DISEASE
  13. DEMADEX [Concomitant]
     Active Substance: TORSEMIDE
  14. COLCRYS [Concomitant]
     Active Substance: COLCHICINE
  15. VITAMIN D3 [Concomitant]
     Active Substance: CHOLECALCIFEROL
  16. PROCRIT [Concomitant]
     Active Substance: ERYTHROPOIETIN
  17. FEOSOL BIFERA [Concomitant]
  18. METANX [Concomitant]
     Active Substance: LEVOMEFOLATE CALCIUM\METHYLCOBALAMIN\PYRIDOXAL PHOSPHATE ANHYDROUS
  19. TRAZODONE HYDROCHLORIDE. [Concomitant]
     Active Substance: TRAZODONE HYDROCHLORIDE
  20. LIDODERM [Concomitant]
     Active Substance: LIDOCAINE
  21. FOLIC ACID. [Concomitant]
     Active Substance: FOLIC ACID
  22. NEXIUM [Concomitant]
     Active Substance: ESOMEPRAZOLE MAGNESIUM

REACTIONS (1)
  - Constipation [Unknown]

NARRATIVE: CASE EVENT DATE: 20160513
